FAERS Safety Report 9561712 (Version 1)
Quarter: 2013Q3

REPORT INFORMATION
  Report Type: Spontaneous
  Country: US (occurrence: US)
  Receive Date: 20130927
  Receipt Date: 20130927
  Transmission Date: 20140515
  Serious: No
  Sender: FDA-Public Use
  Company Number: US-BIOGENIDEC-2013BI062395

PATIENT
  Age: 72 Year
  Sex: Female

DRUGS (7)
  1. TECFIDERA [Suspect]
     Indication: MULTIPLE SCLEROSIS
     Route: 048
     Dates: start: 20130617
  2. TECFIDERA [Suspect]
     Indication: MULTIPLE SCLEROSIS
     Route: 048
     Dates: start: 20130624, end: 20130703
  3. BACLOFEN [Concomitant]
  4. PRAVASTATIN [Concomitant]
  5. CITALPRAM [Concomitant]
  6. LEFLUOMIDE [Concomitant]
  7. TRAMEDAL [Concomitant]

REACTIONS (1)
  - Diarrhoea [Recovered/Resolved]
